FAERS Safety Report 5597819-0 (Version None)
Quarter: 2007Q4

REPORT INFORMATION
  Report Type: 
  Country: None (occurrence: None)
  Receive Date: 20071221
  Receipt Date: 20070723
  Transmission Date: 20080405
  Serious: No
  Sender: FDA-Public Use
  Company Number: US200707004637

PATIENT
  Sex: Female

DRUGS (2)
  1. HUMALOG PEN [Suspect]
     Indication: TYPE 2 DIABETES MELLITUS
     Dates: start: 20070715, end: 20070715
  2. HUMALOG MIX 75/25 [Suspect]
     Indication: TYPE 2 DIABETES MELLITUS
     Dates: start: 20070301

REACTIONS (2)
  - HYPOGLYCAEMIA [None]
  - WRONG DRUG ADMINISTERED [None]
